FAERS Safety Report 11025492 (Version 1)
Quarter: 2015Q2

REPORT INFORMATION
  Report Type: Spontaneous
  Country: BG (occurrence: BG)
  Receive Date: 20150414
  Receipt Date: 20150414
  Transmission Date: 20150821
  Serious: Yes (Hospitalization)
  Sender: FDA-Public Use
  Company Number: BG-ASTELLAS-2014EU014500

PATIENT
  Age: 84 Year
  Sex: Male

DRUGS (5)
  1. NORVASC [Concomitant]
     Active Substance: AMLODIPINE BESYLATE
     Indication: ANGINA PECTORIS
     Route: 048
  2. BETMIGA [Suspect]
     Active Substance: MIRABEGRON
     Indication: BENIGN PROSTATIC HYPERPLASIA
     Dosage: 1 DF, DAILY
     Route: 048
     Dates: start: 20141114
  3. NEBILET [Concomitant]
     Active Substance: NEBIVOLOL
     Indication: HYPERTENSION
     Dosage: 0.5 DF, TWICE DAILY
     Route: 048
  4. ASPIRIN PROTECT [Concomitant]
     Active Substance: ASPIRIN
     Indication: PLATELET AGGREGATION
     Route: 048
  5. BETMIGA [Suspect]
     Active Substance: MIRABEGRON
     Indication: MICTURITION DISORDER

REACTIONS (4)
  - Hepatobiliary disease [Unknown]
  - Drug ineffective [Not Recovered/Not Resolved]
  - Urine output decreased [Not Recovered/Not Resolved]
  - Dysuria [Not Recovered/Not Resolved]
